FAERS Safety Report 8520789 (Version 2)
Quarter: 2012Q4

REPORT INFORMATION
  Report Type: 
  Country: CA (occurrence: CA)
  Receive Date: 20120419
  Receipt Date: 20120927
  Transmission Date: 20130627
  Serious: Yes (Hospitalization, Disabling, Other)
  Sender: FDA-Public Use
  Company Number: CA-AMGEN-CANSP2012022796

PATIENT
  Age: 2 Year
  Sex: Male
  Weight: 12 kg

DRUGS (8)
  1. NPLATE [Suspect]
     Indication: THROMBOCYTOPENIA
     Dosage: 60 mug, qwk
     Route: 058
     Dates: start: 20110120, end: 20110209
  2. CODEINE [Concomitant]
     Dosage: 10 mg, prn
     Route: 048
  3. FLUCONAZOLE [Concomitant]
     Dosage: 120 mg, UNK
     Route: 065
  4. GRAVOL [Concomitant]
     Dosage: 6 mg, prn
     Route: 048
  5. ONDANSETRON [Concomitant]
     Dosage: 2 mg, prn
     Route: 042
  6. PANTOLOC                           /01263204/ [Concomitant]
     Dosage: 12 mg, bid
     Route: 042
  7. PREDNISONE [Concomitant]
     Route: 065
  8. TRANEXAMIC ACID [Concomitant]
     Dosage: 120 mg, q8h
     Route: 042

REACTIONS (4)
  - Areflexia [Recovered/Resolved]
  - Muscular weakness [Recovered/Resolved]
  - Polyneuropathy [Recovered/Resolved]
  - Gastrointestinal haemorrhage [Unknown]
